FAERS Safety Report 9750237 (Version 2)
Quarter: 2013Q4

REPORT INFORMATION
  Report Type: Report from Study
  Country: GR (occurrence: GR)
  Receive Date: 20131212
  Receipt Date: 20131212
  Transmission Date: 20140711
  Serious: Yes (Hospitalization)
  Sender: FDA-Public Use
  Company Number: GR-ABBVIE-09P-066-0605685-00

PATIENT
  Age: 43 Year
  Sex: Female
  Weight: 55 kg

DRUGS (2)
  1. HUMIRA [Suspect]
     Indication: CROHN^S DISEASE
     Route: 058
     Dates: start: 20080621, end: 20090415
  2. PREDNISOLONE [Concomitant]
     Indication: CROHN^S DISEASE
     Dates: start: 20090415

REACTIONS (1)
  - Crohn^s disease [Recovered/Resolved]
